FAERS Safety Report 21240400 (Version 2)
Quarter: 2022Q4

REPORT INFORMATION
  Report Type: Spontaneous
  Country: US (occurrence: US)
  Receive Date: 20220822
  Receipt Date: 20221212
  Transmission Date: 20230112
  Serious: No
  Sender: FDA-Public Use
  Company Number: US-JNJFOC-20220825559

PATIENT
  Age: 80 Year

DRUGS (1)
  1. IMODIUM A-D [Suspect]
     Active Substance: LOPERAMIDE HYDROCHLORIDE
     Indication: Abdominal discomfort
     Dosage: I TOOK ABOUT 7.5ML I ONLY TOOK IT LAST NIGHT
     Route: 065
     Dates: start: 20220810, end: 20220810

REACTIONS (3)
  - Product use in unapproved indication [Unknown]
  - Product use complaint [Unknown]
  - Device malfunction [Unknown]

NARRATIVE: CASE EVENT DATE: 20220810
